FAERS Safety Report 17308868 (Version 1)
Quarter: 2020Q1

REPORT INFORMATION
  Report Type: Spontaneous
  Country: US (occurrence: US)
  Receive Date: 20200123
  Receipt Date: 20200123
  Transmission Date: 20200409
  Serious: No
  Sender: FDA-Public Use
  Company Number: US-ELI_LILLY_AND_COMPANY-US202001009194

PATIENT
  Age: 60 Year
  Sex: Female

DRUGS (1)
  1. EMGALITY [Suspect]
     Active Substance: GALCANEZUMAB-GNLM
     Indication: MIGRAINE
     Dosage: 120 MG, UNKNOWN
     Route: 065
     Dates: start: 201910

REACTIONS (6)
  - Hepatic enzyme increased [Unknown]
  - Drug ineffective [Unknown]
  - Injection site reaction [Unknown]
  - Rash [Unknown]
  - Abdominal pain upper [Unknown]
  - Injection site rash [Unknown]

NARRATIVE: CASE EVENT DATE: 201910
